FAERS Safety Report 8965720 (Version 1)
Quarter: 2012Q4

REPORT INFORMATION
  Report Type: Spontaneous
  Country: JP (occurrence: None)
  Receive Date: 20121206
  Receipt Date: 20121206
  Transmission Date: 20130627
  Serious: Yes (Other)
  Sender: FDA-Public Use
  Company Number: DSA_61201_2012

PATIENT

DRUGS (4)
  1. FLUOROURACIL [Suspect]
     Indication: COLORECTAL CANCER METASTATIC
     Dosage: DF, every other week Intravenous (not otherwise specified))
     Route: 042
  2. LEUCOVORIN [Suspect]
     Indication: COLORECTAL CANCER METASTATIC
     Dosage: DF, every other week Intravenous (not otherwise specified))
     Route: 042
  3. IRINOTECAN [Suspect]
     Indication: COLORECTAL CANCER METASTATIC
     Dosage: DF, every other week Intravenous (not otherwise specified))
     Route: 042
  4. BEVACIZUMAB [Concomitant]

REACTIONS (2)
  - No therapeutic response [None]
  - Decreased appetite [None]
